FAERS Safety Report 11263003 (Version 2)
Quarter: 2015Q3

REPORT INFORMATION
  Report Type: Report from Study
  Country: KR (occurrence: KR)
  Receive Date: 20150710
  Receipt Date: 20150728
  Transmission Date: 20151125
  Serious: Yes (Hospitalization)
  Sender: FDA-Public Use
  Company Number: KR-B.I. PHARMACEUTICALS,INC./RIDGEFIELD-2015-BI-36334RK

PATIENT
  Age: 63 Year
  Sex: Female
  Weight: 89 kg

DRUGS (11)
  1. PRADAXA [Suspect]
     Active Substance: DABIGATRAN ETEXILATE MESYLATE
     Dosage: 220 MG
     Route: 048
     Dates: start: 20150611, end: 20150615
  2. ESOMEZOLE [Concomitant]
     Indication: PROPHYLAXIS
     Dosage: 40 MG
     Route: 048
     Dates: start: 20150611, end: 20150615
  3. PARAMACET [Concomitant]
     Indication: HEADACHE
     Dosage: DOSE PER APPLICATION AND DAILY DOSE: 3T
     Route: 048
     Dates: start: 20150612, end: 20150614
  4. PRADAXA [Suspect]
     Active Substance: DABIGATRAN ETEXILATE MESYLATE
     Dosage: 220 MG
     Route: 048
     Dates: start: 20150619
  5. TAMBOCOR [Concomitant]
     Active Substance: FLECAINIDE ACETATE
     Indication: ATRIAL FIBRILLATION
     Dosage: 200 MG
     Route: 048
     Dates: start: 20150612
  6. AMALONG [Concomitant]
     Indication: HYPERTENSION
     Dosage: 10 MG
     Route: 048
     Dates: start: 20071009, end: 20150615
  7. APROVEL [Concomitant]
     Active Substance: IRBESARTAN
     Indication: HYPERTENSION
     Dosage: 300 MG
     Route: 048
     Dates: start: 20071009, end: 20150615
  8. CRESTOR [Concomitant]
     Active Substance: ROSUVASTATIN CALCIUM
     Indication: HYPERTENSION
     Dosage: 10 MG
     Route: 048
     Dates: start: 20110830, end: 20150615
  9. PRADAXA [Suspect]
     Active Substance: DABIGATRAN ETEXILATE MESYLATE
     Indication: CEREBROVASCULAR ACCIDENT PROPHYLAXIS
     Dosage: 220 MG
     Route: 048
     Dates: start: 20150421, end: 20150609
  10. GASMOTIN [Concomitant]
     Active Substance: MOSAPRIDE CITRATE
     Indication: PROPHYLAXIS
     Dosage: 15 MG
     Route: 048
     Dates: start: 20150612, end: 20150615
  11. ZANAPAM [Concomitant]
     Indication: ANXIETY
     Dosage: 0.345 MG
     Route: 048
     Dates: start: 20150612, end: 20150615

REACTIONS (1)
  - Femoral artery perforation [Recovered/Resolved]

NARRATIVE: CASE EVENT DATE: 20150614
